FAERS Safety Report 6957575-8 (Version None)
Quarter: 2010Q3

REPORT INFORMATION
  Report Type: 
  Country: None (occurrence: None)
  Receive Date: 20100831
  Receipt Date: 20100818
  Transmission Date: 20110219
  Serious: Yes (Hospitalization, Other)
  Sender: FDA-Public Use
  Company Number: PHHY2010DK24725

PATIENT
  Age: 14 Year
  Sex: Female

DRUGS (3)
  1. SANDIMMUNE [Suspect]
     Indication: NEPHROTIC SYNDROME
     Dosage: 5 MG/KG, DAILY
  2. CYCLOPHOSPHAMIDE [Concomitant]
     Indication: HENOCH-SCHONLEIN PURPURA
  3. PREDNISOLONE [Concomitant]
     Indication: HENOCH-SCHONLEIN PURPURA

REACTIONS (5)
  - GLOMERULAR FILTRATION RATE DECREASED [None]
  - NEPHROPATHY TOXIC [None]
  - PROTEINURIA [None]
  - RENAL FAILURE CHRONIC [None]
  - RENAL TRANSPLANT [None]
